FAERS Safety Report 16610012 (Version 1)
Quarter: 2019Q3

REPORT INFORMATION
  Report Type: Spontaneous
  Country: CA (occurrence: CA)
  Receive Date: 20190722
  Receipt Date: 20190722
  Transmission Date: 20191004
  Serious: Yes (Death)
  Sender: FDA-Public Use
  Company Number: CA-TEVA-2019-CA-1080214

PATIENT
  Age: 51 Year
  Sex: Male

DRUGS (6)
  1. DIAZEPAM. [Concomitant]
     Active Substance: DIAZEPAM
  2. TEMAZEPAM. [Concomitant]
     Active Substance: TEMAZEPAM
  3. MORPHINE SULFATE. [Suspect]
     Active Substance: MORPHINE SULFATE
     Indication: PRODUCT USED FOR UNKNOWN INDICATION
     Route: 065
  4. CODEINE [Suspect]
     Active Substance: CODEINE
     Indication: PRODUCT USED FOR UNKNOWN INDICATION
     Route: 065
  5. QUETIAPINE. [Concomitant]
     Active Substance: QUETIAPINE
  6. GABAPENTIN. [Concomitant]
     Active Substance: GABAPENTIN

REACTIONS (2)
  - Death [Fatal]
  - Overdose [Fatal]
